FAERS Safety Report 16084819 (Version 1)
Quarter: 2019Q1

REPORT INFORMATION
  Report Type: Spontaneous
  Country: US (occurrence: US)
  Receive Date: 20190318
  Receipt Date: 20190318
  Transmission Date: 20190418
  Serious: No
  Sender: FDA-Public Use
  Company Number: US-AVADEL SPECIALTY PHARMACEUTICALS, LLC-2018AVA00556

PATIENT
  Age: 76 Year
  Sex: Female

DRUGS (19)
  1. CENTRUM SILVER [Concomitant]
     Active Substance: MINERALS\VITAMINS
  2. MELATONIN [Concomitant]
     Active Substance: MELATONIN
  3. VITAMIN D [Concomitant]
     Active Substance: CHOLECALCIFEROL
  4. DONEPEZIL. [Suspect]
     Active Substance: DONEPEZIL
     Dosage: 10 MG
     Dates: start: 201812
  5. LAMOTRIGINE. [Suspect]
     Active Substance: LAMOTRIGINE
     Dosage: 3 DOSAGE UNITS A DAY
     Dates: start: 20181225, end: 20181225
  6. NOCTIVA [Suspect]
     Active Substance: DESMOPRESSIN ACETATE
     Indication: POLLAKIURIA
  7. DONEPEZIL. [Suspect]
     Active Substance: DONEPEZIL
     Indication: AMNESIA
     Dosage: 5 MG
     Dates: end: 201812
  8. NOCTIVA [Suspect]
     Active Substance: DESMOPRESSIN ACETATE
     Indication: MICTURITION URGENCY
     Dosage: 0.83 ?G, 1X/DAY 30 MINUTES BEFORE BEDTIME
     Route: 045
     Dates: start: 2018
  9. CITRACAL MAXIMUM [Concomitant]
     Active Substance: CALCIUM CITRATE\CHOLECALCIFEROL
  10. LAMOTRIGINE. [Suspect]
     Active Substance: LAMOTRIGINE
     Dosage: 2 DOSAGE UNITS A DAY
     Dates: end: 20181224
  11. STOOL SOFTENER (DOCUSATE) [Concomitant]
     Active Substance: DOCUSATE
  12. DULOXETINE HCL [Concomitant]
     Active Substance: DULOXETINE HYDROCHLORIDE
  13. LITHIUM OROTATE [Concomitant]
     Active Substance: LITHIUM OROTATE
  14. IRON [Concomitant]
     Active Substance: IRON
  15. LAMOTRIGINE. [Suspect]
     Active Substance: LAMOTRIGINE
     Dosage: 2 DOSAGE UNITS A DAY
     Dates: start: 20181226
  16. ATIVAN [Concomitant]
     Active Substance: LORAZEPAM
     Dosage: ^12.5 MG^
     Dates: start: 20181218, end: 20181218
  17. ^ARNACARL^ [Concomitant]
  18. VITAMIN B12 [Concomitant]
     Active Substance: CYANOCOBALAMIN
  19. ATIVAN [Concomitant]
     Active Substance: LORAZEPAM
     Dosage: 0.5 MG, 1X/DAY AT NIGHT

REACTIONS (12)
  - Pollakiuria [Recovered/Resolved]
  - Arthralgia [Not Recovered/Not Resolved]
  - Therapeutic response unexpected [Recovered/Resolved]
  - Incontinence [Recovering/Resolving]
  - Fatigue [Not Recovered/Not Resolved]
  - Product preparation issue [Recovered/Resolved]
  - Sneezing [Unknown]
  - Inappropriate schedule of product administration [Not Recovered/Not Resolved]
  - Insomnia [Recovered/Resolved]
  - Nasal discomfort [Recovered/Resolved]
  - Expulsion of medication [Recovered/Resolved]
  - Anxiety [Recovering/Resolving]

NARRATIVE: CASE EVENT DATE: 2018
